FAERS Safety Report 25957490 (Version 2)
Quarter: 2025Q4

REPORT INFORMATION
  Report Type: Report from Study
  Country: US (occurrence: US)
  Receive Date: 20251024
  Receipt Date: 20251231
  Transmission Date: 20260117
  Serious: No
  Sender: PFIZER
  Company Number: US-PFIZER INC-202500157244

PATIENT
  Age: 84 Year
  Sex: Female
  Weight: 60.8 kg

DRUGS (1)
  1. IBRANCE [Suspect]
     Active Substance: PALBOCICLIB
     Indication: Breast cancer female
     Dosage: 75 MG, 1X/DAY, (TAKE ONE CAPSULE (75 MG DOSE) BY MOUTH DAILY FOR 21 DAYS. THEN 7 DAYS OFF.)
     Route: 048

REACTIONS (1)
  - Renal disorder [Unknown]
